FAERS Safety Report 7493291-4 (Version None)
Quarter: 2011Q2

REPORT INFORMATION
  Report Type: 
  Country: None (occurrence: None)
  Receive Date: 20110428
  Receipt Date: 20110428
  Transmission Date: 20111010
  Serious: Yes (Hospitalization)
  Sender: FDA-Public Use
  Company Number: 031810

PATIENT
  Sex: Female

DRUGS (20)
  1. LOXOPROFEN SODIUM [Concomitant]
  2. KETOPROFEN [Concomitant]
  3. DICLOFENAC SODIUM [Concomitant]
  4. RISEDRONATE SODIUM [Concomitant]
  5. SIMPLE SYRUP [Concomitant]
  6. LAFUTIDINE [Concomitant]
  7. ISONIAZID [Concomitant]
  8. CLARITHROMYCIN [Concomitant]
  9. AMBROXOL HYDROCHLORIDE [Concomitant]
  10. ROSUVASTATIN CALCIUM [Concomitant]
  11. CIMZIA [Suspect]
     Indication: RHEUMATOID ARTHRITIS
     Dosage: SEE IMAGE
     Route: 058
     Dates: start: 20090928, end: 20100110
  12. CIMZIA [Suspect]
     Indication: RHEUMATOID ARTHRITIS
     Dosage: SEE IMAGE
     Route: 058
     Dates: start: 20100120, end: 20110414
  13. RHEUMATREX [Suspect]
     Indication: RHEUMATOID ARTHRITIS
     Dosage: 8 MG 1X/WEEK ORAL
     Route: 048
     Dates: start: 20080222
  14. ETODOLAC [Concomitant]
  15. LANSOPRAZOLE [Concomitant]
  16. LEUCOVORIN CALCIUM [Concomitant]
  17. CARBOCISTEINE [Concomitant]
  18. APRICOT KERNEL WATER [Concomitant]
  19. METHOTREXATE [Concomitant]
  20. CODEINE SULFATE [Concomitant]

REACTIONS (3)
  - INFECTION SUSCEPTIBILITY INCREASED [None]
  - BLOOD PRESSURE DIASTOLIC INCREASED [None]
  - BRONCHOPNEUMONIA [None]
